FAERS Safety Report 6024388-3 (Version None)
Quarter: 2008Q4

REPORT INFORMATION
  Report Type: 
  Country: None (occurrence: None)
  Receive Date: 20081229
  Receipt Date: 20081001
  Transmission Date: 20090506
  Serious: Yes (Hospitalization)
  Sender: FDA-Public Use
  Company Number: 001#1#2008-00562

PATIENT
  Sex: Female
  Weight: 93.1 kg

DRUGS (4)
  1. VIMPAT [Suspect]
     Indication: EPILEPSY
     Dosage: ORAL
     Route: 048
     Dates: start: 20080908, end: 20080916
  2. KEPPRA [Concomitant]
  3. LAMICTAL [Concomitant]
  4. CITALOPRAM HYDROBROMIDE [Concomitant]

REACTIONS (2)
  - DERMATITIS ALLERGIC [None]
  - DRUG INTOLERANCE [None]
